FAERS Safety Report 24852255 (Version 2)
Quarter: 2025Q1

REPORT INFORMATION
  Report Type: Spontaneous
  Country: US (occurrence: US)
  Receive Date: 20250116
  Receipt Date: 20250203
  Transmission Date: 20250409
  Serious: Yes (Hospitalization)
  Sender: SANOFI AVENTIS
  Company Number: US-SA-2025SA013324

PATIENT
  Age: 82 Year
  Sex: Female

DRUGS (15)
  1. DUPIXENT [Suspect]
     Active Substance: DUPILUMAB
     Indication: Chronic obstructive pulmonary disease
     Dosage: 300 MG, QOW
     Route: 058
     Dates: start: 20241211
  2. AMOXICILLIN [Suspect]
     Active Substance: AMOXICILLIN
  3. AMLODIPINE BESYLATE [Concomitant]
     Active Substance: AMLODIPINE BESYLATE
  4. BENAZEPRIL HYDROCHLORIDE [Concomitant]
     Active Substance: BENAZEPRIL HYDROCHLORIDE
  5. BREO ELLIPTA [Concomitant]
     Active Substance: FLUTICASONE FUROATE\VILANTEROL TRIFENATATE
  6. CALCIUM [Concomitant]
     Active Substance: CALCIUM
  7. CELECOXIB [Concomitant]
     Active Substance: CELECOXIB
  8. SPIRIVA RESPIMAT [Concomitant]
     Active Substance: TIOTROPIUM BROMIDE
  9. FLUTICASONE [Concomitant]
     Active Substance: FLUTICASONE
  10. LEVOCETIRIZINE [Concomitant]
     Active Substance: LEVOCETIRIZINE
  11. MONTELUKAST [Concomitant]
     Active Substance: MONTELUKAST
  12. VITAMIN B12 [Concomitant]
     Active Substance: CYANOCOBALAMIN
  13. VITAMIN D NOS [Concomitant]
     Active Substance: CHOLECALCIFEROL\ERGOCALCIFEROL
  14. VITAMIN C [Concomitant]
     Active Substance: ASCORBIC ACID
  15. VITAMIN B12 [Concomitant]
     Active Substance: CYANOCOBALAMIN

REACTIONS (5)
  - Drug hypersensitivity [Not Recovered/Not Resolved]
  - Productive cough [Not Recovered/Not Resolved]
  - Dyspnoea [Not Recovered/Not Resolved]
  - Wheezing [Not Recovered/Not Resolved]
  - Sinus disorder [Not Recovered/Not Resolved]
